FAERS Safety Report 4315845-6 (Version None)
Quarter: 2004Q1

REPORT INFORMATION
  Report Type: 
  Country: None (occurrence: None)
  Receive Date: 20040310
  Receipt Date: 20040301
  Transmission Date: 20041129
  Serious: Yes (Hospitalization)
  Sender: FDA-Public Use
  Company Number: 2004AP01265

PATIENT
  Age: 52 Year
  Sex: Male

DRUGS (5)
  1. ROPIVACAINE [Suspect]
     Indication: ANALGESIC EFFECT
     Dosage: 35 ML IV
     Route: 042
  2. ROPIVACAINE [Suspect]
     Indication: ANALGESIC EFFECT
     Dosage: 6 ML /HR
  3. ROPIVACAINE [Suspect]
     Indication: ANALGESIC EFFECT
     Dosage: 6 ML /HR
  4. LIGNOCAINE WITH ADRENALINE [Concomitant]
  5. PROPOFOL [Concomitant]

REACTIONS (5)
  - ANAESTHETIC COMPLICATION [None]
  - ARTHRALGIA [None]
  - COLLAPSE OF LUNG [None]
  - DIAPHRAGMATIC PARALYSIS [None]
  - POST PROCEDURAL PAIN [None]
